FAERS Safety Report 8324646-3 (Version None)
Quarter: 2012Q1

REPORT INFORMATION
  Report Type: 
  Country: None (occurrence: None)
  Receive Date: 20120315
  Receipt Date: 20110503
  Transmission Date: 20120608
  Serious: No
  Sender: FDA-Public Use
  Company Number: PHHY2011US28492

PATIENT
  Age: 40 Year
  Sex: Female
  Weight: 74.8 kg

DRUGS (4)
  1. GILENYA [Suspect]
     Indication: MULTIPLE SCLEROSIS
     Dosage: 0.5 MG, QD, ORAL
     Route: 048
     Dates: start: 20110325
  2. VITAMIN D [Concomitant]
  3. NECON (ETHINYLESTRADIOL, NORESTHISTERONE) [Concomitant]
  4. NAPROXEN [Concomitant]

REACTIONS (3)
  - VAGINAL HAEMORRHAGE [None]
  - NAUSEA [None]
  - PAIN IN EXTREMITY [None]
